FAERS Safety Report 26054811 (Version 1)
Quarter: 2025Q4

REPORT INFORMATION
  Report Type: Spontaneous
  Country: US (occurrence: None)
  Receive Date: 20251117
  Receipt Date: 20251117
  Transmission Date: 20260117
  Serious: Yes (Hospitalization)
  Sender: FDA-CTU
  Company Number: None

PATIENT
  Sex: Female

DRUGS (11)
  1. REVLIMID [Suspect]
     Active Substance: LENALIDOMIDE
     Indication: Plasma cell myeloma
     Dosage: TAKE 1 CAPSULE BY MOUTH DAILY ON DAYS 1-21 OF A 28 DAY CYCLE.TAKE WHOLE WITH WATER, WITH OR WITHOUT FOOD AT APPROXIMATELY THE SAME TIME EACH DAY.??
     Route: 048
     Dates: start: 20251008
  2. ALPRAZOLAM [Concomitant]
     Active Substance: ALPRAZOLAM
  3. BACTRIM DS [Concomitant]
     Active Substance: SULFAMETHOXAZOLE\TRIMETHOPRIM
  4. CALCIUM 60 +D [Concomitant]
  5. VITAMIN D3 [Concomitant]
     Active Substance: CHOLECALCIFEROL
  6. DARZALEX [Concomitant]
     Active Substance: DARATUMUMAB
  7. FLUCONAZOLE [Concomitant]
     Active Substance: FLUCONAZOLE
  8. LENALIDOMIDE [Concomitant]
     Active Substance: LENALIDOMIDE
  9. MIRALAX POW [Concomitant]
  10. MORPHINE SULFATE [Concomitant]
     Active Substance: MORPHINE SULFATE
  11. NEUPOGEN [Concomitant]
     Active Substance: FILGRASTIM

REACTIONS (3)
  - Back pain [None]
  - Infection [None]
  - Meningitis [None]
